FAERS Safety Report 4320724-4 (Version None)
Quarter: 2004Q1

REPORT INFORMATION
  Report Type: 
  Country: None (occurrence: None)
  Receive Date: 20040322
  Receipt Date: 20040106
  Transmission Date: 20041129
  Serious: Yes (Other)
  Sender: FDA-Public Use
  Company Number: FR-ROCHE-355747

PATIENT
  Age: 3 Month
  Sex: Male
  Weight: 3.4 kg

DRUGS (5)
  1. MIDAZOLAM HCL [Suspect]
     Indication: SEDATION
     Route: 065
     Dates: start: 20031224, end: 20031231
  2. FENTANYL [Concomitant]
     Dates: start: 20031224, end: 20031231
  3. VANCOMYCIN [Concomitant]
     Dosage: ANTIBIOTHERAPY.
     Dates: end: 20040101
  4. GENTAMICIN [Concomitant]
     Dosage: ANTIBIOTHERAPY.
     Dates: end: 20031227
  5. CLAFORAN [Concomitant]
     Dosage: ANTIBIOTHERAPY.
     Dates: end: 20040101

REACTIONS (13)
  - BLOOD PRESSURE DECREASED [None]
  - CARDIOMEGALY [None]
  - CYTOLYTIC HEPATITIS [None]
  - DILATATION VENTRICULAR [None]
  - FALSE POSITIVE LABORATORY RESULT [None]
  - HYPOTONIA [None]
  - LIVEDO RETICULARIS [None]
  - OXYGEN SATURATION DECREASED [None]
  - PALLOR [None]
  - PULMONARY VALVE STENOSIS [None]
  - RESPIRATORY DISTRESS [None]
  - TACHYCARDIA [None]
  - VENTRICULAR HYPERTROPHY [None]
